FAERS Safety Report 8509375-5 (Version None)
Quarter: 2012Q3

REPORT INFORMATION
  Report Type: 
  Country: None (occurrence: None)
  Receive Date: 20120713
  Receipt Date: 20120628
  Transmission Date: 20120928
  Serious: Yes (Hospitalization)
  Sender: FDA-Public Use
  Company Number: CH-ROCHE-1084826

PATIENT
  Sex: Male

DRUGS (10)
  1. TORSEMIDE [Suspect]
     Indication: HYPERTENSION
     Route: 048
     Dates: start: 20120501
  2. DIGOXIN [Suspect]
     Indication: MYOCARDIAL ISCHAEMIA
     Route: 048
     Dates: start: 20120511
  3. ATORVASTATIN CALCIUM [Suspect]
     Indication: HYPERLIPIDAEMIA
     Route: 048
  4. INSPRA [Concomitant]
     Dosage: ON HOSPITALISATION
     Route: 048
  5. INSPRA [Concomitant]
     Dosage: ON HOSPITALISATION
     Route: 048
  6. ASPIRIN [Concomitant]
     Route: 048
  7. MARCUMAR [Concomitant]
     Dosage: AS REQUIRED
     Route: 048
     Dates: start: 20120501
  8. JANUMET [Suspect]
     Indication: TYPE 2 DIABETES MELLITUS
     Dosage: 50/500 MG
     Route: 048
     Dates: start: 20120511
  9. LOSARTAN POTASSIUM AND HYDROCHLOROTHIAZIDE [Suspect]
     Indication: HYPERTENSION
     Dosage: 25/12.5 MG
     Route: 048
     Dates: start: 20120511
  10. CONCOR [Concomitant]
     Route: 048

REACTIONS (9)
  - PERSONALITY CHANGE [None]
  - DIARRHOEA [None]
  - CARDIOACTIVE DRUG LEVEL INCREASED [None]
  - RENAL FAILURE CHRONIC [None]
  - HALLUCINATION [None]
  - NAUSEA [None]
  - BLOOD LACTIC ACID INCREASED [None]
  - DRUG INTERACTION [None]
  - CONFUSIONAL STATE [None]
